FAERS Safety Report 9530148 (Version 2)
Quarter: 2013Q4

REPORT INFORMATION
  Report Type: Spontaneous
  Country: US (occurrence: US)
  Receive Date: 20130917
  Receipt Date: 20131010
  Transmission Date: 20140711
  Serious: Yes (Hospitalization, Other)
  Sender: FDA-Public Use
  Company Number: US-JHP PHARMACEUTICALS, LLC-JHP201300537

PATIENT
  Age: 36 Year
  Sex: Female
  Weight: 156.46 kg

DRUGS (2)
  1. PITOCIN [Suspect]
     Indication: LABOUR INDUCTION
     Dosage: UNK
     Route: 042
     Dates: start: 2012, end: 2012
  2. ALDOMET [Concomitant]
     Indication: HYPERTENSION
     Dosage: 250 MG, BID
     Route: 048

REACTIONS (2)
  - Peripartum cardiomyopathy [Recovered/Resolved]
  - Maternal exposure during pregnancy [Recovered/Resolved]
